FAERS Safety Report 8041743-0 (Version None)
Quarter: 2012Q1

REPORT INFORMATION
  Report Type: 
  Country: None (occurrence: None)
  Receive Date: 20120112
  Receipt Date: 20120105
  Transmission Date: 20120608
  Serious: Yes (Death)
  Sender: FDA-Public Use
  Company Number: JP-SHIRE-ALL1-2011-04741

PATIENT
  Age: 73 Year
  Sex: Male

DRUGS (12)
  1. KAYEXALATE [Concomitant]
     Indication: HYPERKALAEMIA
     Dosage: 5 G, UNKNOWN
     Route: 048
     Dates: end: 20111128
  2. PLAVIX [Concomitant]
     Indication: MYOCARDIAL INFARCTION
     Dosage: 25 MG, UNKNOWN
     Route: 048
     Dates: start: 20090109, end: 20111128
  3. FOSRENOL [Suspect]
     Dosage: 2250 MG PER DAY, OTHER
     Route: 048
     Dates: start: 20110119, end: 20110316
  4. CINACALCET HYDROCHLORIDE [Concomitant]
     Indication: HYPERPARATHYROIDISM SECONDARY
     Dosage: 75 MG, UNKNOWN
     Route: 048
     Dates: end: 20111128
  5. FOSRENOL [Suspect]
     Dosage: 1500 MG PER DAY, OTHER
     Route: 048
     Dates: start: 20110107, end: 20110119
  6. FOSRENOL [Suspect]
     Dosage: 1500 MG PER DAY, OTHER
     Route: 048
     Dates: start: 20110406, end: 20111128
  7. FOSRENOL [Suspect]
     Indication: HYPERPHOSPHATAEMIA
     Dosage: 750 MG, PER DAY OTHER
     Route: 048
     Dates: start: 20100210, end: 20110107
  8. FOSRENOL [Suspect]
     Dosage: 750 MG PER DAY, OTHER
     Route: 048
     Dates: start: 20110316, end: 20110406
  9. RANITAC [Concomitant]
     Indication: GASTRITIS
     Dosage: 150 MG, UNKNOWN
     Route: 048
     Dates: start: 20101001, end: 20111128
  10. SILVINOL [Concomitant]
     Indication: MYOCARDIAL INFARCTION
     Dosage: 15 MG, UNK
     Route: 048
     Dates: end: 20111128
  11. ASPIRIN [Concomitant]
     Indication: MYOCARDIAL INFARCTION
     Dosage: 100 MG, UNKNOWN
     Route: 048
     Dates: start: 20080109, end: 20111128
  12. OREN-GEDOKU-TO [Concomitant]
     Indication: PRURITUS
     Dosage: 6 G, UNKNOWN
     Route: 048
     Dates: end: 20111128

REACTIONS (3)
  - SEPSIS [None]
  - WRONG TECHNIQUE IN DRUG USAGE PROCESS [None]
  - X-RAY GASTROINTESTINAL TRACT ABNORMAL [None]
